FAERS Safety Report 10637840 (Version 1)
Quarter: 2014Q4

REPORT INFORMATION
  Report Type: Spontaneous
  Country: US (occurrence: None)
  Receive Date: 20141204
  Receipt Date: 20141204
  Transmission Date: 20150529
  Serious: Yes (Hospitalization, Other)
  Sender: FDA-Public Use
  Company Number: 2014SMT00127

PATIENT
  Age: 44 Year
  Sex: Male

DRUGS (1)
  1. REGRANEX [Suspect]
     Active Substance: BECAPLERMIN
     Indication: DIABETIC ULCER
     Route: 061

REACTIONS (3)
  - Osteomyelitis [None]
  - Localised infection [None]
  - Abscess [None]

NARRATIVE: CASE EVENT DATE: 2014
